FAERS Safety Report 4295066-6 (Version None)
Quarter: 2004Q1

REPORT INFORMATION
  Report Type: 
  Country: None (occurrence: None)
  Receive Date: 20040211
  Receipt Date: 20040122
  Transmission Date: 20041129
  Serious: Yes (Other)
  Sender: FDA-Public Use
  Company Number: USA040157304

PATIENT
  Sex: Female

DRUGS (2)
  1. HUMALOG [Suspect]
  2. RHINOCORT AQUA (BUDESONIDE) [Concomitant]

REACTIONS (1)
  - RESPIRATORY DISTRESS [None]
